FAERS Safety Report 20976085 (Version 1)
Quarter: 2022Q2

REPORT INFORMATION
  Report Type: Spontaneous
  Country: US (occurrence: US)
  Receive Date: 20220617
  Receipt Date: 20220617
  Transmission Date: 20220721
  Serious: No
  Sender: FDA-Public Use
  Company Number: US-PFIZER INC-PV202200003381

PATIENT
  Age: 69 Year
  Sex: Female

DRUGS (1)
  1. AROMASIN [Suspect]
     Active Substance: EXEMESTANE
     Indication: Breast neoplasm
     Dosage: 25 MG

REACTIONS (2)
  - Gastritis [Unknown]
  - Diarrhoea [Unknown]
